FAERS Safety Report 5101360-9 (Version None)
Quarter: 2006Q3

REPORT INFORMATION
  Report Type: 
  Country: None (occurrence: None)
  Receive Date: 20060911
  Receipt Date: 20060906
  Transmission Date: 20061208
  Serious: Yes (Other)
  Sender: FDA-Public Use
  Company Number: US-GLAXOSMITHKLINE-A0619173A

PATIENT
  Sex: Male

DRUGS (1)
  1. AQUAFRESH EXTRA FRESH BREATH TOOTHPASTE TUBE [Suspect]
     Indication: DENTAL CLEANING

REACTIONS (1)
  - NEPHROLITHIASIS [None]
